FAERS Safety Report 18392820 (Version 2)
Quarter: 2020Q4

REPORT INFORMATION
  Report Type: Spontaneous
  Country: US (occurrence: US)
  Receive Date: 20201016
  Receipt Date: 20201030
  Transmission Date: 20210114
  Serious: Yes (Hospitalization)
  Sender: FDA-Public Use
  Company Number: US-LUPIN PHARMACEUTICALS INC.-2020-07198

PATIENT
  Age: 41 Year
  Sex: Male
  Weight: 103.86 kg

DRUGS (3)
  1. LEVOTHYROXINE SODIUM TABLETS USP, 100 MCG [Suspect]
     Active Substance: LEVOTHYROXINE SODIUM
     Dosage: 150 MICROGRAM, QD (1 PILL AND HALF)
     Route: 048
     Dates: start: 202008
  2. LEVOTHYROXINE SODIUM TABLETS USP, 100 MCG [Suspect]
     Active Substance: LEVOTHYROXINE SODIUM
     Indication: HYPOTHYROIDISM
     Dosage: 100 MICROGRAM, QD
     Route: 048
     Dates: start: 20200820
  3. LISINOPRIL. [Concomitant]
     Active Substance: LISINOPRIL
     Indication: PRODUCT USED FOR UNKNOWN INDICATION
     Dosage: 12.5 MILLIGRAM, UNK
     Route: 065

REACTIONS (3)
  - Blood thyroid stimulating hormone increased [Recovering/Resolving]
  - Tachycardia [Recovered/Resolved]
  - Hypertension [Not Recovered/Not Resolved]

NARRATIVE: CASE EVENT DATE: 20200827
